FAERS Safety Report 5731233-X (Version None)
Quarter: 2008Q2

REPORT INFORMATION
  Report Type: 
  Country: None (occurrence: None)
  Receive Date: 20080507
  Receipt Date: 20080428
  Transmission Date: 20081010
  Serious: No
  Sender: FDA-Public Use
  Company Number: VE-BOEHRINGER INGELHEIM GMBH, GERMANY-2008-BP-06717VB

PATIENT
  Sex: Female

DRUGS (1)
  1. MIRAPEX [Suspect]
     Indication: PARKINSON'S DISEASE
     Route: 048
     Dates: start: 20070601, end: 20080201

REACTIONS (1)
  - HEADACHE [None]
